FAERS Safety Report 11294451 (Version 2)
Quarter: 2015Q3

REPORT INFORMATION
  Report Type: Spontaneous
  Country: US (occurrence: US)
  Receive Date: 20150722
  Receipt Date: 20150916
  Transmission Date: 20151125
  Serious: No
  Sender: FDA-Public Use
  Company Number: US-ELI_LILLY_AND_COMPANY-US200807002762

PATIENT
  Sex: Female

DRUGS (5)
  1. EVISTA [Suspect]
     Active Substance: RALOXIFENE HYDROCHLORIDE
  2. VITAMIN D [Concomitant]
     Active Substance: CHOLECALCIFEROL
  3. ZOCOR [Concomitant]
     Active Substance: SIMVASTATIN
  4. CALCIUM [Concomitant]
     Active Substance: CALCIUM
  5. FORTEO [Suspect]
     Active Substance: TERIPARATIDE
     Dates: start: 200710, end: 20080525

REACTIONS (6)
  - Vomiting [Unknown]
  - Dysphonia [Unknown]
  - Anxiety [Unknown]
  - Balance disorder [Unknown]
  - Carotid pulse abnormal [Unknown]
  - Oropharyngeal pain [Unknown]
